FAERS Safety Report 5443481-7 (Version None)
Quarter: 2007Q3

REPORT INFORMATION
  Report Type: 
  Country: None (occurrence: None)
  Receive Date: 20070905
  Receipt Date: 20070824
  Transmission Date: 20080115
  Serious: Yes (Other)
  Sender: FDA-Public Use
  Company Number: JP-ROCHE-491930

PATIENT
  Age: 7 Year
  Sex: Male
  Weight: 22 kg

DRUGS (4)
  1. TAMIFLU [Suspect]
     Dosage: DRUG REPORTED AS TAMIFLU DRY SYRUP 3%. FORM: DRY SYRUP.
     Route: 048
     Dates: start: 20070322, end: 20070322
  2. DASEN [Suspect]
     Indication: COUGH
     Route: 048
  3. MUCODYNE [Suspect]
     Indication: COUGH
     Route: 048
  4. BISOLVON [Suspect]
     Indication: COUGH
     Dosage: FORM: FINE GRANULE.
     Route: 048

REACTIONS (3)
  - ABNORMAL BEHAVIOUR [None]
  - AGITATION [None]
  - HYPERKINESIA [None]
